FAERS Safety Report 11995381 (Version 2)
Quarter: 2016Q1

REPORT INFORMATION
  Report Type: Spontaneous
  Country: US (occurrence: US)
  Receive Date: 20160203
  Receipt Date: 20160222
  Transmission Date: 20160526
  Serious: Yes (Other)
  Sender: FDA-Public Use
  Company Number: US-SMITH AND NEPHEW, INC-2016SMT00077

PATIENT
  Age: 68 Year
  Sex: Female
  Weight: 117.91 kg

DRUGS (2)
  1. REGRANEX [Suspect]
     Active Substance: BECAPLERMIN
     Indication: WOUND
     Dosage: UNK, 1X/DAY
     Route: 061
     Dates: start: 20151231
  2. UNSPECIFIED CONCOMITANT MEDICATIONS [Concomitant]

REACTIONS (4)
  - Nausea [Unknown]
  - Osteomyelitis chronic [Recovered/Resolved]
  - Flatulence [Unknown]
  - Application site infection [Unknown]

NARRATIVE: CASE EVENT DATE: 20151229
